FAERS Safety Report 13551895 (Version 1)
Quarter: 2017Q2

REPORT INFORMATION
  Report Type: Not Available
  Country: JP (occurrence: JP)
  Receive Date: 20170516
  Receipt Date: 20170516
  Transmission Date: 20170830
  Serious: Yes (Hospitalization)
  Sender: FDA-Public Use
  Company Number: PR2028

PATIENT
  Age: 66 Year
  Sex: Female

DRUGS (1)
  1. ZIOPTAN [Suspect]
     Active Substance: TAFLUPROST

REACTIONS (4)
  - Seasonal allergy [None]
  - Helicobacter infection [Unknown]
  - Nasopharyngitis [Recovered/Resolved]
  - Goitre [None]

NARRATIVE: CASE EVENT DATE: 20150402
